FAERS Safety Report 4399075-8 (Version None)
Quarter: 2004Q2

REPORT INFORMATION
  Report Type: 
  Country: None (occurrence: None)
  Receive Date: 20040621
  Receipt Date: 20031218
  Transmission Date: 20050107
  Serious: Yes (Disabling, Other)
  Sender: FDA-Public Use
  Company Number: 2012200

PATIENT
  Sex: Female
  Weight: 86.2 kg

DRUGS (7)
  1. OXYCONTIN [Suspect]
     Indication: PAIN
     Dosage: 10 MG, BID, ORAL
     Route: 048
     Dates: start: 20000207
  2. RITALIN [Concomitant]
  3. NORCO [Concomitant]
  4. CELEXA [Concomitant]
  5. OVER THE COUNTER COLD MEDICINE [Concomitant]
  6. ANTIBIOTICS [Concomitant]
  7. LIDODERM PATCH [Concomitant]

REACTIONS (27)
  - ANXIETY [None]
  - ASTHENIA [None]
  - BACK PAIN [None]
  - CELLULITIS [None]
  - CRYING [None]
  - DEPRESSION [None]
  - DIZZINESS [None]
  - DRUG ABUSER [None]
  - DRUG DEPENDENCE [None]
  - DRUG INEFFECTIVE [None]
  - DRUG WITHDRAWAL SYNDROME [None]
  - ECZEMA [None]
  - ERYTHEMA [None]
  - FATIGUE [None]
  - HYPERHIDROSIS [None]
  - HYPOAESTHESIA [None]
  - INADEQUATE ANALGESIA [None]
  - MEMORY IMPAIRMENT [None]
  - NAUSEA [None]
  - NECK PAIN [None]
  - OEDEMA PERIPHERAL [None]
  - PAIN [None]
  - PARAESTHESIA [None]
  - PYREXIA [None]
  - SOMNOLENCE [None]
  - TENDERNESS [None]
  - VOMITING [None]
